FAERS Safety Report 15096953 (Version 2)
Quarter: 2018Q3

REPORT INFORMATION
  Report Type: Spontaneous
  Country: IN (occurrence: IN)
  Receive Date: 20180702
  Receipt Date: 20180712
  Transmission Date: 20181010
  Serious: Yes (Other)
  Sender: FDA-Public Use
  Company Number: IN-PFIZER INC-2018262400

PATIENT
  Age: 18 Year
  Sex: Male

DRUGS (6)
  1. IRINOTECAN HCL [Suspect]
     Active Substance: IRINOTECAN HYDROCHLORIDE
     Indication: PALLIATIVE CARE
  2. CALCIUM FOLINATE [Suspect]
     Active Substance: LEUCOVORIN CALCIUM
     Indication: ADENOCARCINOMA
     Dosage: UNK, CYCLIC (TEN CYCLES OF FOLFIRI CHEMOTHERAPY GIVEN EVERY 2 WEEKS)
  3. FLUOROURACIL. [Suspect]
     Active Substance: FLUOROURACIL
     Indication: PALLIATIVE CARE
  4. IRINOTECAN HCL [Suspect]
     Active Substance: IRINOTECAN HYDROCHLORIDE
     Indication: ADENOCARCINOMA
     Dosage: UNK, CYCLIC (TEN CYCLES OF FOLFIRI CHEMOTHERAPY GIVEN EVERY 2 WEEKS)
  5. CALCIUM FOLINATE [Suspect]
     Active Substance: LEUCOVORIN CALCIUM
     Indication: PALLIATIVE CARE
  6. FLUOROURACIL. [Suspect]
     Active Substance: FLUOROURACIL
     Indication: ADENOCARCINOMA
     Dosage: UNK, CYCLIC (TEN CYCLES OF FOLFIRI CHEMOTHERAPY GIVEN EVERY 2 WEEKS)

REACTIONS (1)
  - Posterior reversible encephalopathy syndrome [Recovering/Resolving]
